FAERS Safety Report 8093134-4 (Version None)
Quarter: 2012Q1

REPORT INFORMATION
  Report Type: 
  Country: None (occurrence: None)
  Receive Date: 20120128
  Receipt Date: 20111027
  Transmission Date: 20120608
  Serious: No
  Sender: FDA-Public Use
  Company Number: US-ABBOTT-11P-163-0843532-00

PATIENT
  Age: 57 Year
  Sex: Male

DRUGS (3)
  1. AZULFIDINE [Concomitant]
     Indication: INFLAMMATION
     Dosage: 2 GRAMS DAILY
  2. PREDNISONE TAB [Concomitant]
     Indication: INFLAMMATION
     Dosage: 7.5 MG DAILY
  3. HUMIRA [Suspect]
     Indication: CROHN'S DISEASE
     Dates: start: 20110501

REACTIONS (5)
  - JOINT STIFFNESS [None]
  - ARTHRALGIA [None]
  - PRODUCTIVE COUGH [None]
  - PAIN [None]
  - BURNING SENSATION [None]
